FAERS Safety Report 22677149 (Version 6)
Quarter: 2023Q4

REPORT INFORMATION
  Report Type: Spontaneous
  Country: US (occurrence: US)
  Receive Date: 20230706
  Receipt Date: 20231211
  Transmission Date: 20240110
  Serious: No
  Sender: FDA-Public Use
  Company Number: US-PFIZER INC-202300239487

PATIENT
  Age: 14 Year
  Sex: Male

DRUGS (1)
  1. GENOTROPIN [Suspect]
     Active Substance: SOMATROPIN
     Dosage: 1.4 MG, DAILY
     Dates: start: 20230605

REACTIONS (4)
  - Drug dose omission by device [Unknown]
  - Device issue [Unknown]
  - Device breakage [Unknown]
  - Device defective [Unknown]
